FAERS Safety Report 12068618 (Version 2)
Quarter: 2016Q1

REPORT INFORMATION
  Report Type: Spontaneous
  Country: CN (occurrence: CN)
  Receive Date: 20160211
  Receipt Date: 20160219
  Transmission Date: 20160526
  Serious: Yes (Hospitalization, Other)
  Sender: FDA-Public Use
  Company Number: PHHY2016CN016871

PATIENT
  Age: 23 Year
  Sex: Male

DRUGS (3)
  1. TELBIVUDINE [Suspect]
     Active Substance: TELBIVUDINE
     Indication: CHRONIC HEPATITIS B
     Dosage: 600 MG, QD
     Route: 065
  2. ADEFOVIR DIPIVOXIL. [Concomitant]
     Active Substance: ADEFOVIR DIPIVOXIL
     Indication: CHRONIC HEPATITIS B
     Dosage: 10 MG, QD
     Route: 065
  3. RIBAVIRIN. [Concomitant]
     Active Substance: RIBAVIRIN
     Indication: CHRONIC HEPATITIS B
     Dosage: 900 MG, QD
     Route: 065
     Dates: end: 200901

REACTIONS (13)
  - Vomiting [Unknown]
  - Nausea [Unknown]
  - Oedema peripheral [Unknown]
  - Acute kidney injury [Recovered/Resolved]
  - Paraesthesia [Unknown]
  - Palpitations [Unknown]
  - Neuropathy peripheral [Recovered/Resolved]
  - Vision blurred [Unknown]
  - Chest discomfort [Unknown]
  - Myalgia [Unknown]
  - Urine output decreased [Unknown]
  - Rhabdomyolysis [Recovered/Resolved]
  - Asphyxia [Unknown]
